FAERS Safety Report 19495636 (Version 1)
Quarter: 2021Q3

REPORT INFORMATION
  Report Type: Report from Study
  Country: None (occurrence: US)
  Receive Date: 20210706
  Receipt Date: 20210706
  Transmission Date: 20211014
  Serious: Yes (Other)
  Sender: FDA-Public Use
  Company Number: US-ABBVIE-21K-163-3976862-00

PATIENT
  Age: 56 Year
  Sex: Female

DRUGS (1)
  1. IMBRUVICA [Suspect]
     Active Substance: IBRUTINIB
     Indication: NON-HODGKIN^S LYMPHOMA
     Route: 048
     Dates: start: 202011

REACTIONS (3)
  - Fatigue [Recovering/Resolving]
  - Diarrhoea [Recovering/Resolving]
  - Pulmonary mass [Recovering/Resolving]

NARRATIVE: CASE EVENT DATE: 202011
